FAERS Safety Report 15627622 (Version 1)
Quarter: 2018Q4

REPORT INFORMATION
  Report Type: Spontaneous
  Country: US (occurrence: US)
  Receive Date: 20181116
  Receipt Date: 20181116
  Transmission Date: 20190205
  Serious: No
  Sender: FDA-Public Use
  Company Number: US-MYLANLABS-2018M1083119

PATIENT
  Sex: Male

DRUGS (2)
  1. EMSAM [Suspect]
     Active Substance: SELEGILINE
     Indication: MAJOR DEPRESSION
     Dosage: UNK
     Route: 062
  2. EMSAM [Suspect]
     Active Substance: SELEGILINE
     Route: 062

REACTIONS (1)
  - Application site rash [Unknown]
